FAERS Safety Report 5118755-X (Version None)
Quarter: 2006Q3

REPORT INFORMATION
  Report Type: 
  Country: None (occurrence: None)
  Receive Date: 20060927
  Receipt Date: 20060914
  Transmission Date: 20061208
  Serious: Yes (Other)
  Sender: FDA-Public Use
  Company Number: 2006107363

PATIENT
  Age: 52 Year
  Sex: Male

DRUGS (1)
  1. EPANUTIN (PHENYTOIN SODIUM) [Suspect]
     Indication: EPILEPSY
     Dosage: 425 MG (425 MG, 1 IN 1 D), ORAL
     Route: 048
     Dates: start: 20051001

REACTIONS (13)
  - ANXIETY [None]
  - BALANCE DISORDER [None]
  - CONFUSIONAL STATE [None]
  - DERMATITIS CONTACT [None]
  - DIZZINESS [None]
  - EYE MOVEMENT DISORDER [None]
  - INSOMNIA [None]
  - MEMORY IMPAIRMENT [None]
  - MOVEMENT DISORDER [None]
  - MUSCLE CONTRACTURE [None]
  - NERVOUSNESS [None]
  - SOMNOLENCE [None]
  - TREMOR [None]
